FAERS Safety Report 4549288-7 (Version None)
Quarter: 2004Q4

REPORT INFORMATION
  Report Type: 
  Country: None (occurrence: None)
  Receive Date: 20041230
  Receipt Date: 20040610
  Transmission Date: 20050328
  Serious: Yes (Other)
  Sender: FDA-Public Use
  Company Number: 04-06-0832

PATIENT
  Age: 24 Year
  Sex: Male
  Weight: 97.5234 kg

DRUGS (15)
  1. CLOZAPINE [Suspect]
     Indication: BIPOLAR DISORDER
     Dosage: SEE IMAGE
     Route: 048
     Dates: start: 20040309, end: 20040609
  2. CLOZAPINE [Suspect]
     Indication: SCHIZOAFFECTIVE DISORDER
     Dosage: SEE IMAGE
     Route: 048
     Dates: start: 20040309, end: 20040609
  3. CLOZAPINE [Suspect]
     Indication: BIPOLAR DISORDER
     Dosage: SEE IMAGE
     Route: 048
     Dates: start: 20040309, end: 20040609
  4. CLOZAPINE [Suspect]
     Indication: SCHIZOAFFECTIVE DISORDER
     Dosage: SEE IMAGE
     Route: 048
     Dates: start: 20040309, end: 20040609
  5. HALDOL [Concomitant]
  6. GEODON TABLETS [Concomitant]
  7. SEROQUEL [Concomitant]
  8. COGENTIN [Concomitant]
  9. WELLBUTRIN TABLETS SR [Concomitant]
  10. QUETIAPINE FUMARATE [Concomitant]
  11. PANTOPRAZOLE SODIUM [Concomitant]
  12. DOCUSATE SODIUM [Concomitant]
  13. FERROUS SULFATE TAB [Concomitant]
  14. FOLIC ACID [Concomitant]
  15. MULTI-VITAMINS [Concomitant]

REACTIONS (1)
  - NEUTROPENIA [None]
